FAERS Safety Report 24086407 (Version 1)
Quarter: 2024Q3

REPORT INFORMATION
  Report Type: Report from Study
  Country: IT (occurrence: IT)
  Receive Date: 20240712
  Receipt Date: 20240712
  Transmission Date: 20241017
  Serious: Yes (Hospitalization, Other)
  Sender: TEVA
  Company Number: None

PATIENT
  Age: 7 Year
  Sex: Female
  Weight: 23 kg

DRUGS (2)
  1. CARBOPLATIN [Suspect]
     Active Substance: CARBOPLATIN
     Indication: Medulloblastoma
     Dosage: CARBOPLATINO TEVA, 143 MG/DAY FROM 11/08 TO 14/08/2023; SUBSEQUENTLY FROM 01/09 TO 05/09/2023
     Route: 042
     Dates: start: 20230811, end: 20230905
  2. ETOPOSIDE [Suspect]
     Active Substance: ETOPOSIDE
     Indication: Medulloblastoma
     Dosage: 89 MG/DAY FROM DAY 11/08 TO DAY 14/08/23 AND FROM DAY 01 TO DAY 05/09/2023
     Route: 042
     Dates: start: 20230811, end: 20230905

REACTIONS (6)
  - Rotavirus infection [Recovering/Resolving]
  - Leukopenia [Recovered/Resolved]
  - Thrombocytopenia [Recovered/Resolved]
  - Neutropenia [Recovered/Resolved]
  - Alopecia [Recovering/Resolving]
  - Anaemia [Recovering/Resolving]

NARRATIVE: CASE EVENT DATE: 20230821
